FAERS Safety Report 14963343 (Version 1)
Quarter: 2018Q2

REPORT INFORMATION
  Report Type: Spontaneous
  Country: DE (occurrence: DE)
  Receive Date: 20180601
  Receipt Date: 20180601
  Transmission Date: 20180711
  Serious: Yes (Hospitalization)
  Sender: FDA-Public Use
  Company Number: DE-DRREDDYS-GER/GER/18/0099860

PATIENT
  Age: 82 Year
  Sex: Female
  Weight: 56 kg

DRUGS (32)
  1. BISOHEXAL [Suspect]
     Active Substance: BISOPROLOL FUMARATE
     Indication: PRODUCT USED FOR UNKNOWN INDICATION
     Dosage: 0.5 IN 1 DAY
     Dates: start: 2016
  2. ASPIRIN. [Suspect]
     Active Substance: ASPIRIN
     Indication: PRODUCT USED FOR UNKNOWN INDICATION
  3. TOREM [Concomitant]
     Active Substance: TORSEMIDE
     Indication: PRODUCT USED FOR UNKNOWN INDICATION
     Dosage: DAILY DOSE: 5 MG MILLGRAM(S) EVERY DAYS
  4. ENOXAPARIN [Concomitant]
     Active Substance: ENOXAPARIN
     Indication: PRODUCT USED FOR UNKNOWN INDICATION
     Dosage: DAILY DOSE: 0.6 MG MILLGRAM(S) EVERY DAYS
  5. RIOPAN [Concomitant]
     Indication: PRODUCT USED FOR UNKNOWN INDICATION
     Dosage: DAILY DOSE: 4800 MG MILLGRAM(S) EVERY DAYS
  6. LIXIANA [Suspect]
     Active Substance: EDOXABAN TOSYLATE
     Indication: ATRIAL FIBRILLATION
     Dosage: DAILY DOSE: 30 MG MILLGRAM(S) EVERY DAYS
     Dates: start: 20160930
  7. AMIODARON [Suspect]
     Active Substance: AMIODARONE
     Indication: PRODUCT USED FOR UNKNOWN INDICATION
  8. CORDAREX [Concomitant]
     Active Substance: AMIODARONE
     Indication: PRODUCT USED FOR UNKNOWN INDICATION
     Dosage: DAILY DOSE: 200 MG MILLGRAM(S) EVERY DAYS
  9. FRAXIPARIN [Concomitant]
     Active Substance: NADROPARIN CALCIUM
     Indication: PRODUCT USED FOR UNKNOWN INDICATION
     Dosage: DAILY DOSE: 5700 IU INTERNATIONAL UNIT(S) EVERY DAYS
  10. LOSARTAN COMP [Suspect]
     Active Substance: HYDROCHLOROTHIAZIDE\LOSARTAN POTASSIUM
     Indication: PRODUCT USED FOR UNKNOWN INDICATION
     Dosage: 100/25 MG
     Dates: start: 2016
  11. FENTANYL TRANSDERMAL SYSTEM [Suspect]
     Active Substance: FENTANYL
     Indication: PRODUCT USED FOR UNKNOWN INDICATION
     Dosage: 75 MICROGRAM/HOUR AND PLASTER CHANGE EVERY 3 DAYS
  12. SODIUM CHLORIDE. [Concomitant]
     Active Substance: SODIUM CHLORIDE
     Indication: PRODUCT USED FOR UNKNOWN INDICATION
  13. HUMIRA [Suspect]
     Active Substance: ADALIMUMAB
     Indication: RHEUMATOID ARTHRITIS
     Dates: start: 20161115
  14. VALSARTAN. [Suspect]
     Active Substance: VALSARTAN
     Indication: PRODUCT USED FOR UNKNOWN INDICATION
  15. VOLTAREN RESINAT [Suspect]
     Active Substance: DICLOFENAC
     Indication: PRODUCT USED FOR UNKNOWN INDICATION
     Dates: end: 201610
  16. FOLIC ACID. [Concomitant]
     Active Substance: FOLIC ACID
     Indication: PRODUCT USED FOR UNKNOWN INDICATION
     Dates: start: 20170124
  17. LEVOSIMENDAN [Concomitant]
     Active Substance: LEVOSIMENDAN
     Indication: PRODUCT USED FOR UNKNOWN INDICATION
     Dosage: FOR 1.5 DAYS
     Dates: start: 201611, end: 201611
  18. SPASMEX (TROSPIUM CHLORIDE) [Suspect]
     Active Substance: TROSPIUM CHLORIDE
     Dosage: DAILY DOSE: 45 MG MILLGRAM(S) EVERY DAYS
     Dates: end: 20170124
  19. SIMVASTATIN. [Suspect]
     Active Substance: SIMVASTATIN
     Indication: PRODUCT USED FOR UNKNOWN INDICATION
     Route: 065
  20. PANTOPRAZOLE [Suspect]
     Active Substance: PANTOPRAZOLE
     Indication: PRODUCT USED FOR UNKNOWN INDICATION
     Dosage: DAILY DOSE: 20 MG MILLGRAM(S) EVERY DAYS
     Route: 065
  21. TORASEMID [Suspect]
     Active Substance: TORSEMIDE
     Indication: PRODUCT USED FOR UNKNOWN INDICATION
  22. HUMIRA [Suspect]
     Active Substance: ADALIMUMAB
     Dates: start: 20120411, end: 20160927
  23. MOVICOL [Suspect]
     Active Substance: POLYETHYLENE GLYCOL 3350\POTASSIUM CHLORIDE\SODIUM BICARBONATE\SODIUM CHLORIDE
     Indication: PRODUCT USED FOR UNKNOWN INDICATION
     Dates: start: 20170124
  24. BIFITERAL [Suspect]
     Active Substance: LACTULOSE
     Indication: PRODUCT USED FOR UNKNOWN INDICATION
     Dates: end: 20170124
  25. LIXIANA [Suspect]
     Active Substance: EDOXABAN TOSYLATE
     Dosage: DAILY DOSE: 30 MG MILLGRAM(S) EVERY DAYS
  26. PREDNISOLON [Suspect]
     Active Substance: PREDNISOLONE
     Indication: PRODUCT USED FOR UNKNOWN INDICATION
  27. SPIRO COMP [Suspect]
     Active Substance: FUROSEMIDE\SPIRONOLACTONE
     Indication: PRODUCT USED FOR UNKNOWN INDICATION
     Dosage: 50MG/20MG
     Dates: end: 201610
  28. METOPROLOL SUCC [Suspect]
     Active Substance: METOPROLOL SUCCINATE
     Indication: PRODUCT USED FOR UNKNOWN INDICATION
     Dates: end: 20170124
  29. CLOPIDOGREL [Suspect]
     Active Substance: CLOPIDOGREL BISULFATE
     Indication: PRODUCT USED FOR UNKNOWN INDICATION
     Dates: end: 20170124
  30. XIPAMID [Suspect]
     Active Substance: XIPAMIDE
     Indication: PRODUCT USED FOR UNKNOWN INDICATION
     Dates: end: 20170124
  31. SPASMEX (TROSPIUM CHLORIDE) [Suspect]
     Active Substance: TROSPIUM CHLORIDE
     Indication: PRODUCT USED FOR UNKNOWN INDICATION
     Dosage: DAILY DOSE: 15 MG MILLGRAM(S) EVERY DAYS
  32. DEKRISTOL [Suspect]
     Active Substance: CHOLECALCIFEROL
     Indication: PRODUCT USED FOR UNKNOWN INDICATION
     Dosage: DAILY DOSE: 20000 IU INTERNATIONAL UNIT(S) EVERY WEEKS

REACTIONS (54)
  - Diverticulum intestinal [Unknown]
  - Acute kidney injury [Unknown]
  - Myocardial infarction [Recovered/Resolved]
  - Oedema peripheral [Unknown]
  - Hyponatraemia [Unknown]
  - General physical health deterioration [Unknown]
  - Groin pain [Unknown]
  - Urinary tract infection [Unknown]
  - Vomiting [Unknown]
  - Wound infection pseudomonas [Unknown]
  - Pulmonary hypertension [Unknown]
  - Abdominal discomfort [Unknown]
  - Arthralgia [Unknown]
  - Gait disturbance [Unknown]
  - Coronary artery disease [Unknown]
  - Hyperkalaemia [Unknown]
  - Syncope [Unknown]
  - Cardiogenic shock [Unknown]
  - Haematuria [Unknown]
  - Eructation [Unknown]
  - Hiatus hernia [Unknown]
  - Faecaloma [Unknown]
  - Mitral valve incompetence [Unknown]
  - Haemarthrosis [Unknown]
  - Tachyarrhythmia [Unknown]
  - Hepatic cyst [Unknown]
  - Dyspepsia [Unknown]
  - Decreased appetite [Unknown]
  - Cardiovascular disorder [Unknown]
  - Joint dislocation [Unknown]
  - Gastrointestinal haemorrhage [Recovered/Resolved]
  - Anaemia [Recovered/Resolved]
  - Seroma [Unknown]
  - Left ventricular dysfunction [Recovered/Resolved]
  - Aplastic anaemia [Unknown]
  - Postoperative wound infection [Recovered/Resolved]
  - Urinary retention [Unknown]
  - Escherichia infection [Unknown]
  - Tricuspid valve incompetence [Unknown]
  - Myelodysplastic syndrome [Unknown]
  - Impaired healing [Recovered/Resolved]
  - Femoral hernia incarcerated [Recovered/Resolved]
  - Joint dislocation [Recovered/Resolved]
  - Anuria [Unknown]
  - Wound dehiscence [Recovered/Resolved]
  - Osteopenia [Unknown]
  - Peripheral swelling [Unknown]
  - Arterial haemorrhage [Recovered/Resolved]
  - Pancreatic steatosis [Unknown]
  - Aortic valve stenosis [Unknown]
  - Aortic arteriosclerosis [Unknown]
  - Lymphatic fistula [Recovered/Resolved]
  - Inflammatory marker increased [Recovered/Resolved]
  - Dyspnoea [Unknown]

NARRATIVE: CASE EVENT DATE: 201603
